FAERS Safety Report 16312646 (Version 1)
Quarter: 2019Q2

REPORT INFORMATION
  Report Type: Spontaneous
  Country: US (occurrence: US)
  Receive Date: 20190515
  Receipt Date: 20190515
  Transmission Date: 20190711
  Serious: Yes (Hospitalization)
  Sender: FDA-Public Use
  Company Number: US-ROCHE-2318851

PATIENT
  Sex: Female

DRUGS (1)
  1. ESBRIET [Suspect]
     Active Substance: PIRFENIDONE
     Indication: IDIOPATHIC PULMONARY FIBROSIS
     Dosage: 3 X 267 MG TABLETS, 801 MG TOTAL DAILY, 9 PILLS, ONGOING: YES
     Route: 048
     Dates: start: 201501

REACTIONS (1)
  - Dyspnoea [Not Recovered/Not Resolved]
